FAERS Safety Report 7501766-4 (Version None)
Quarter: 2011Q2

REPORT INFORMATION
  Report Type: 
  Country: None (occurrence: None)
  Receive Date: 20110523
  Receipt Date: 20110523
  Transmission Date: 20111010
  Serious: Yes (Hospitalization)
  Sender: FDA-Public Use
  Company Number: None

PATIENT
  Age: 92 Year
  Sex: Female
  Weight: 74.6 kg

DRUGS (8)
  1. TYLENOL-500 [Concomitant]
  2. VIT C [Concomitant]
  3. COUMADIN [Suspect]
     Indication: ATRIAL FIBRILLATION
     Dosage: 1 MG QHS PO CHRONIC
     Route: 048
  4. SEPTRA [Suspect]
     Dosage: PO
     Route: 048
  5. CALCIUM + VIT D [Concomitant]
  6. M.V.I. [Concomitant]
  7. COREG [Concomitant]
  8. SENNA S [Concomitant]

REACTIONS (5)
  - RENAL FAILURE ACUTE [None]
  - HYPOPHAGIA [None]
  - INTERNATIONAL NORMALISED RATIO DECREASED [None]
  - UPPER GASTROINTESTINAL HAEMORRHAGE [None]
  - HYPERKALAEMIA [None]
